FAERS Safety Report 9643418 (Version 2)
Quarter: 2013Q4

REPORT INFORMATION
  Report Type: Spontaneous
  Country: US (occurrence: US)
  Receive Date: 20131024
  Receipt Date: 20131029
  Transmission Date: 20140711
  Serious: Yes (Other)
  Sender: FDA-Public Use
  Company Number: US-TEVA-439554USA

PATIENT
  Sex: Male
  Weight: 86.26 kg

DRUGS (3)
  1. FENTORA [Suspect]
     Indication: BREAKTHROUGH PAIN
  2. ACTIQ [Suspect]
     Indication: BREAKTHROUGH PAIN
  3. FENTANYL [Concomitant]
     Indication: BREAKTHROUGH PAIN
     Route: 062

REACTIONS (7)
  - Spinal cord disorder [Unknown]
  - Spinal column stenosis [Unknown]
  - Sciatica [Unknown]
  - Off label use [Unknown]
  - Drug administration error [Unknown]
  - Drug ineffective [Unknown]
  - Blood glucose abnormal [Unknown]
